FAERS Safety Report 15575627 (Version 4)
Quarter: 2020Q1

REPORT INFORMATION
  Report Type: Spontaneous
  Country: JP (occurrence: JP)
  Receive Date: 20181101
  Receipt Date: 20200310
  Transmission Date: 20200409
  Serious: Yes (Hospitalization)
  Sender: FDA-Public Use
  Company Number: JP-ACTELION-A-CH2018-181001

PATIENT
  Age: 86 Year
  Sex: Female

DRUGS (18)
  1. ETIZOLAM [Concomitant]
     Active Substance: ETIZOLAM
  2. WARFARIN [Suspect]
     Active Substance: WARFARIN
     Indication: DEEP VEIN THROMBOSIS
     Dosage: 1.5 MG, QD
     Dates: start: 20130305, end: 20181025
  3. TIZANIDINE. [Concomitant]
     Active Substance: TIZANIDINE
  4. METHYCOBAL [Concomitant]
     Active Substance: METHYLCOBALAMIN
  5. ALFACALCIDOL [Concomitant]
     Active Substance: ALFACALCIDOL
  6. PREDNISOLONE. [Concomitant]
     Active Substance: PREDNISOLONE
  7. FEBURIC [Concomitant]
     Active Substance: FEBUXOSTAT
  8. SAMSCA [Concomitant]
     Active Substance: TOLVAPTAN
  9. CALONAL [Concomitant]
     Active Substance: ACETAMINOPHEN
  10. LIXIANA [Concomitant]
     Active Substance: EDOXABAN TOSYLATE
     Indication: GASTROINTESTINAL HAEMORRHAGE
  11. OPSUMIT [Suspect]
     Active Substance: MACITENTAN
     Indication: PULMONARY HYPERTENSION
     Dosage: 10 MG, QD
     Route: 048
     Dates: start: 20180618
  12. OPALMON [Concomitant]
     Active Substance: LIMAPROST
  13. LIPIDIL [Concomitant]
     Active Substance: FENOFIBRATE
  14. FUROSEMIDE. [Concomitant]
     Active Substance: FUROSEMIDE
  15. TAKECAB [Concomitant]
     Active Substance: VONOPRAZAN FUMURATE
     Indication: GASTROINTESTINAL HAEMORRHAGE
  16. ZETIA [Concomitant]
     Active Substance: EZETIMIBE
  17. MAGMITT [Concomitant]
     Active Substance: MAGNESIUM OXIDE
  18. OXYGEN. [Concomitant]
     Active Substance: OXYGEN

REACTIONS (6)
  - Pneumonia [Recovered/Resolved]
  - Faeces discoloured [Recovered/Resolved]
  - Gastrointestinal haemorrhage [Recovered/Resolved]
  - Anaemia [Recovering/Resolving]
  - Transfusion [Unknown]
  - Haematochezia [Recovered/Resolved]

NARRATIVE: CASE EVENT DATE: 20180626
